FAERS Safety Report 6354481-7 (Version None)
Quarter: 2009Q3

REPORT INFORMATION
  Report Type: 
  Country: None (occurrence: None)
  Receive Date: 20090914
  Receipt Date: 20081107
  Transmission Date: 20100115
  Serious: Yes (Death, Hospitalization, Other)
  Sender: FDA-Public Use
  Company Number: PHHO2007DE18396

PATIENT
  Sex: Male

DRUGS (7)
  1. LBH589 LBH+CAP [Suspect]
     Indication: ACUTE MYELOID LEUKAEMIA
     Dosage: 800MG
     Route: 048
     Dates: start: 20071001, end: 20071029
  2. DICLOFENAC SODIUM [Suspect]
  3. AMBISOME [Suspect]
  4. LEVOFLOXACIN [Concomitant]
  5. LASIX [Concomitant]
  6. TRIAMTERENE AND HYDROCHLOROTHIAZIDE [Concomitant]
  7. ALLOPURINOL [Concomitant]

REACTIONS (12)
  - ASCITES [None]
  - FLUID INTAKE REDUCED [None]
  - HEPATIC FAILURE [None]
  - MALIGNANT NEOPLASM PROGRESSION [None]
  - MULTI-ORGAN FAILURE [None]
  - NEPHROPATHY TOXIC [None]
  - OEDEMA [None]
  - PNEUMONIA FUNGAL [None]
  - RENAL FAILURE ACUTE [None]
  - SEPSIS [None]
  - URINE OUTPUT DECREASED [None]
  - WEIGHT INCREASED [None]
